FAERS Safety Report 6796329-2 (Version None)
Quarter: 2010Q2

REPORT INFORMATION
  Report Type: 
  Country: None (occurrence: None)
  Receive Date: 20100622
  Receipt Date: 20100525
  Transmission Date: 20101027
  Serious: Yes (Other)
  Sender: FDA-Public Use
  Company Number: 2010US001822

PATIENT
  Age: 45 Year
  Sex: Male
  Weight: 90 kg

DRUGS (7)
  1. AMBISOME [Suspect]
     Indication: CANDIDIASIS
     Dosage: 300 MG, UID/QD, IV NOS
     Route: 042
     Dates: start: 20100511, end: 20100513
  2. PANTOPRAZOL (PANTOPRAZOLE SODIUM) [Concomitant]
  3. TAZOCEL (PIPERACILLIN SODIUM, TAZOBACTAM SODIUM) [Concomitant]
  4. NORADRENALINA (NOREPINEPHRINE) [Concomitant]
  5. OPIOIDS [Concomitant]
  6. BENZODIAZEPINE DERIVATIVES [Concomitant]
  7. TIGLECINE (TIGLECINE) [Concomitant]

REACTIONS (1)
  - TOXIC SKIN ERUPTION [None]
